FAERS Safety Report 6208642-8 (Version None)
Quarter: 2009Q2

REPORT INFORMATION
  Report Type: 
  Country: None (occurrence: None)
  Receive Date: 20090522
  Receipt Date: 20090305
  Transmission Date: 20091009
  Serious: No
  Sender: FDA-Public Use
  Company Number: 8043735

PATIENT
  Age: 20 Year
  Sex: Male

DRUGS (2)
  1. CIMZIA [Suspect]
     Dosage: SC
     Route: 058
     Dates: start: 20081223
  2. PREDNISONE [Concomitant]

REACTIONS (3)
  - HYPOAESTHESIA [None]
  - NEUROPATHY PERIPHERAL [None]
  - PARAESTHESIA [None]
